FAERS Safety Report 24843043 (Version 1)
Quarter: 2025Q1

REPORT INFORMATION
  Report Type: Report from Study
  Country: US (occurrence: US)
  Receive Date: 20250115
  Receipt Date: 20250115
  Transmission Date: 20250409
  Serious: No
  Sender: HRA PHARMA
  Company Number: US-ORG100014127-2024000055

PATIENT
  Age: 59 Year
  Sex: Male

DRUGS (18)
  1. LYSODREN [Suspect]
     Active Substance: MITOTANE
     Indication: Adrenal gland cancer
     Dosage: 2 TABLETS THREE TIME DAILY
     Route: 048
     Dates: start: 20231229
  2. ETOPOSIDE [Concomitant]
     Active Substance: ETOPOSIDE
     Indication: Product used for unknown indication
  3. CISPLATIN [Concomitant]
     Active Substance: CISPLATIN
     Indication: Product used for unknown indication
  4. ACETAMIN TAB 500MG [Concomitant]
     Indication: Product used for unknown indication
  5. AMLODIPINE [Concomitant]
     Active Substance: AMLODIPINE BESYLATE
     Indication: Product used for unknown indication
  6. AMLODIPINE TAB 5MG [Concomitant]
     Indication: Product used for unknown indication
  7. CYCLOBENZAPR TAB 10MG [Concomitant]
     Indication: Product used for unknown indication
  8. DEXAMETHASONE [Concomitant]
     Active Substance: DEXAMETHASONE
     Indication: Product used for unknown indication
  9. EMEND CAP 80MG [Concomitant]
     Indication: Product used for unknown indication
  10. FLOMAX [Concomitant]
     Active Substance: TAMSULOSIN HYDROCHLORIDE
     Indication: Product used for unknown indication
  11. LIDOCAINE PAD 5% [Concomitant]
     Indication: Product used for unknown indication
  12. LIPITOR TAB 10MG [Concomitant]
     Indication: Product used for unknown indication
  13. LIPITOR TAB 40MG [Concomitant]
     Indication: Product used for unknown indication
  14. MELATONIN TAB 5MG [Concomitant]
     Indication: Product used for unknown indication
  15. ONDANSETRON TAB 4MG ODT [Concomitant]
     Indication: Product used for unknown indication
  16. OXYCODONE TAB 10MG [Concomitant]
     Indication: Product used for unknown indication
  17. PROCHLORPER TAB 10MG [Concomitant]
     Indication: Product used for unknown indication
  18. SENNA S TAB 8.6-50MG [Concomitant]
     Indication: Product used for unknown indication

REACTIONS (2)
  - Alopecia [Not Recovered/Not Resolved]
  - Fatigue [Not Recovered/Not Resolved]

NARRATIVE: CASE EVENT DATE: 20240101
